FAERS Safety Report 22157060 (Version 1)
Quarter: 2023Q1

REPORT INFORMATION
  Report Type: Spontaneous
  Country: US (occurrence: US)
  Receive Date: 20230330
  Receipt Date: 20230330
  Transmission Date: 20230418
  Serious: No
  Sender: FDA-Public Use
  Company Number: US-TAKEDA-2023TUS031995

PATIENT
  Sex: Female

DRUGS (1)
  1. NINLARO [Suspect]
     Active Substance: IXAZOMIB CITRATE
     Indication: Product used for unknown indication
     Dosage: 4 MILLIGRAM
     Route: 048

REACTIONS (7)
  - Abdominal pain [Unknown]
  - Respiration abnormal [Unknown]
  - Micturition disorder [Unknown]
  - Rash macular [Unknown]
  - Vomiting [Unknown]
  - Diarrhoea [Unknown]
  - Rash [Unknown]
